FAERS Safety Report 9520513 (Version 1)
Quarter: 2013Q3

REPORT INFORMATION
  Report Type: Spontaneous
  Country: IN (occurrence: IN)
  Receive Date: 20130913
  Receipt Date: 20130913
  Transmission Date: 20140515
  Serious: Yes (Other)
  Sender: FDA-Public Use
  Company Number: IN-MYLANLABS-2013S1019796

PATIENT
  Age: 34 Year
  Sex: Female

DRUGS (2)
  1. PROPOFOL [Suspect]
     Indication: SEDATIVE THERAPY
     Dosage: 100 MICROG/KG/MIN; CONTINUOUS
     Route: 050
  2. FENTANYL [Suspect]
     Indication: SEDATIVE THERAPY
     Route: 042

REACTIONS (5)
  - Cardiogenic shock [Recovered/Resolved]
  - Acute respiratory failure [Recovered/Resolved]
  - Cardiac failure [Recovered/Resolved]
  - Nausea [Recovered/Resolved]
  - Vomiting [Recovered/Resolved]
